FAERS Safety Report 19794962 (Version 1)
Quarter: 2021Q3

REPORT INFORMATION
  Report Type: Spontaneous
  Country: CN (occurrence: CN)
  Receive Date: 20210907
  Receipt Date: 20210907
  Transmission Date: 20211014
  Serious: Yes (Other)
  Sender: FDA-Public Use
  Company Number: CN-SUN PHARMACEUTICAL INDUSTRIES LTD-2021R1-310161

PATIENT
  Age: 67 Year
  Sex: Male
  Weight: 77.5 kg

DRUGS (8)
  1. VECURONIUM [Interacting]
     Active Substance: VECURONIUM BROMIDE
     Indication: ANAESTHESIA
     Dosage: 50 MILLIGRAM
     Route: 065
  2. SUFENTANIL [Interacting]
     Active Substance: SUFENTANIL
     Indication: ANAESTHESIA
     Dosage: 15 MICROGRAM
     Route: 065
  3. LOSARTAN. [Interacting]
     Active Substance: LOSARTAN
     Indication: HYPERTENSION
     Dosage: 62.5 MILLIGRAM, DAILY
     Route: 065
  4. PROPOFOL. [Interacting]
     Active Substance: PROPOFOL
     Indication: ANAESTHESIA
     Dosage: 150 MILLIGRAM (2 INFUSION)
     Route: 065
  5. INSULIN [Concomitant]
     Active Substance: INSULIN NOS
     Indication: DIABETES MELLITUS
     Dosage: UNK, DAILY
     Route: 058
  6. NIFEDIPINE. [Suspect]
     Active Substance: NIFEDIPINE
     Indication: HYPERTENSION
     Dosage: 30 MILLIGRAM, DAILY
     Route: 065
  7. MIDAZOLAM. [Interacting]
     Active Substance: MIDAZOLAM
     Indication: ANAESTHESIA
     Dosage: 1 MILLIGRAM
     Route: 065
  8. ACARBOSE. [Concomitant]
     Active Substance: ACARBOSE
     Indication: DIABETES MELLITUS
     Dosage: 50 MILLIGRAM, TID
     Route: 065

REACTIONS (4)
  - Bradyarrhythmia [Unknown]
  - Tachycardia [Unknown]
  - Hypotension [Unknown]
  - Drug interaction [Unknown]
